FAERS Safety Report 20858628 (Version 2)
Quarter: 2022Q2

REPORT INFORMATION
  Report Type: Spontaneous
  Country: US (occurrence: US)
  Receive Date: 20220522
  Receipt Date: 20220611
  Transmission Date: 20220721
  Serious: No
  Sender: FDA-Public Use
  Company Number: US-JNJFOC-20220531283

PATIENT
  Age: 68 Year
  Sex: Male
  Weight: 78.9 kg

DRUGS (10)
  1. OPSUMIT [Suspect]
     Active Substance: MACITENTAN
     Indication: Product used for unknown indication
     Route: 048
     Dates: end: 2022
  2. TREPROSTINIL SODIUM [Suspect]
     Active Substance: TREPROSTINIL SODIUM
     Indication: Pulmonary arterial hypertension
     Route: 055
     Dates: start: 20220309
  3. TREPROSTINIL SODIUM [Suspect]
     Active Substance: TREPROSTINIL SODIUM
     Dosage: 18-54 G (3-9 BREATHS)
     Route: 055
     Dates: start: 202203
  4. TREPROSTINIL SODIUM [Suspect]
     Active Substance: TREPROSTINIL SODIUM
     Dosage: (3 BREATHS)
     Route: 055
     Dates: start: 202203
  5. TREPROSTINIL SODIUM [Suspect]
     Active Substance: TREPROSTINIL SODIUM
     Dosage: (4 BREATHS)
     Route: 055
     Dates: end: 20220324
  6. TREPROSTINIL SODIUM [Suspect]
     Active Substance: TREPROSTINIL SODIUM
     Route: 055
     Dates: start: 20220328
  7. TREPROSTINIL SODIUM [Suspect]
     Active Substance: TREPROSTINIL SODIUM
     Route: 055
     Dates: start: 20220504
  8. TREPROSTINIL SODIUM [Suspect]
     Active Substance: TREPROSTINIL SODIUM
     Dosage: 18-54 UG (3-9 BREATHS)
     Route: 055
     Dates: start: 20220509
  9. ADEMPAS [Concomitant]
     Active Substance: RIOCIGUAT
  10. NIFEDIPINE [Concomitant]
     Active Substance: NIFEDIPINE

REACTIONS (12)
  - Iron deficiency [Unknown]
  - Fatigue [Recovered/Resolved]
  - Dyspnoea [Unknown]
  - Malaise [Unknown]
  - Lethargy [Unknown]
  - Condition aggravated [Unknown]
  - Blood pressure decreased [Unknown]
  - Peripheral swelling [Unknown]
  - Nausea [Recovered/Resolved]
  - Headache [Recovered/Resolved]
  - Weight increased [Unknown]
  - Therapy non-responder [Unknown]

NARRATIVE: CASE EVENT DATE: 20220301
